FAERS Safety Report 8343160-2 (Version None)
Quarter: 2012Q2

REPORT INFORMATION
  Report Type: 
  Country: None (occurrence: None)
  Receive Date: 20120508
  Receipt Date: 20120501
  Transmission Date: 20120825
  Serious: Yes (Hospitalization)
  Sender: FDA-Public Use
  Company Number: IT-PFIZER INC-2012108521

PATIENT
  Age: 69 Year
  Sex: Male

DRUGS (11)
  1. DEXAMETHASONE SODIUM PHOSPHATE [Concomitant]
  2. LASIX [Concomitant]
  3. CISPLATIN [Suspect]
     Indication: NON-HODGKIN'S LYMPHOMA
     Dosage: 200 MG, CYCLIC
     Route: 041
     Dates: start: 20120314, end: 20120426
  4. MABTHERA [Suspect]
     Indication: NON-HODGKIN'S LYMPHOMA
     Dosage: 700 MG, CYCLIC
     Route: 041
     Dates: start: 20120314, end: 20120426
  5. TRIMETON [Concomitant]
  6. RAMIPRIL [Concomitant]
  7. CYTARABINE [Suspect]
     Indication: NON-HODGKIN'S LYMPHOMA
     Dosage: 4000 MG, CYCLIC
     Route: 042
     Dates: start: 20120314, end: 20120426
  8. ASPIRIN [Concomitant]
  9. NAVOBAN [Concomitant]
     Dosage: UNK
     Route: 041
  10. TENORMIN [Concomitant]
  11. LEVOTHYROXINE SODIUM [Concomitant]

REACTIONS (6)
  - HYPOCALCAEMIA [None]
  - ANAEMIA [None]
  - ERYTHEMA [None]
  - PRURITUS [None]
  - THROMBOCYTOPENIA [None]
  - RENAL FAILURE [None]
